FAERS Safety Report 24602086 (Version 2)
Quarter: 2024Q4

REPORT INFORMATION
  Report Type: Report from Study
  Country: US (occurrence: US)
  Receive Date: 20241111
  Receipt Date: 20241130
  Transmission Date: 20250115
  Serious: Yes (Hospitalization, Other)
  Sender: ABBVIE
  Company Number: US-ABBVIE-5975046

PATIENT
  Age: 29 Year
  Sex: Female
  Weight: 69 kg

DRUGS (4)
  1. HUMIRA [Suspect]
     Active Substance: ADALIMUMAB
     Indication: Rheumatoid arthritis
     Dosage: LAST ADMIN DATE- JUL 2024 OR AUG 2024, FORM STRENGTH: 40 MG
     Route: 058
     Dates: start: 20230331
  2. TRAMADOL [Concomitant]
     Active Substance: TRAMADOL
     Indication: Neuralgia
  3. HYDROCODONE [Concomitant]
     Active Substance: HYDROCODONE
     Indication: Neuralgia
  4. PREGABALIN [Concomitant]
     Active Substance: PREGABALIN
     Indication: Seizure

REACTIONS (5)
  - Loss of consciousness [Recovered/Resolved]
  - Seizure [Recovered/Resolved]
  - Fall [Recovered/Resolved]
  - Contusion [Recovered/Resolved]
  - Syncope [Unknown]

NARRATIVE: CASE EVENT DATE: 20240101
